FAERS Safety Report 20678672 (Version 1)
Quarter: 2022Q2

REPORT INFORMATION
  Report Type: Spontaneous
  Country: JP (occurrence: None)
  Receive Date: 20220406
  Receipt Date: 20220406
  Transmission Date: 20220721
  Serious: Yes (Death)
  Sender: FDA-Public Use
  Company Number: 2022A126267

PATIENT
  Age: 63 Year
  Sex: Male
  Weight: 69 kg

DRUGS (12)
  1. LOKELMA [Suspect]
     Active Substance: SODIUM ZIRCONIUM CYCLOSILICATE
     Indication: Hyperkalaemia
     Route: 048
     Dates: start: 20210608, end: 20210610
  2. LOKELMA [Suspect]
     Active Substance: SODIUM ZIRCONIUM CYCLOSILICATE
     Indication: Hyperkalaemia
     Dosage: AFTER LUNCH
     Route: 048
     Dates: start: 20210611, end: 20210614
  3. PRECEDEX [Concomitant]
     Active Substance: DEXMEDETOMIDINE HYDROCHLORIDE
     Indication: Sedation
     Dosage: 0.24-0.43 MCG/KG/HR
     Route: 042
     Dates: start: 20210612, end: 20210619
  4. NOR-ADRENALIN [Concomitant]
     Dosage: DOSE UNKNOWN
     Route: 065
     Dates: start: 20210608
  5. HEPARIN SODIUM [Concomitant]
     Active Substance: HEPARIN SODIUM
     Dosage: DOSE UNKNOWN
     Route: 065
     Dates: start: 20210608
  6. PITRESSIN [Concomitant]
     Active Substance: VASOPRESSIN
     Dosage: DOSE UNKNOWN
     Route: 065
     Dates: start: 20210608, end: 20210614
  7. MORPHINE HYDROCHLORIDE [Concomitant]
     Active Substance: MORPHINE HYDROCHLORIDE
     Dosage: DOSE UNKNOWN
     Route: 065
     Dates: start: 20210608
  8. MIDAZOLAM [Concomitant]
     Active Substance: MIDAZOLAM
     Dosage: DOSE UNKNOWN
     Route: 065
     Dates: start: 20210608
  9. LANSOPRAZOLE [Concomitant]
     Active Substance: LANSOPRAZOLE
     Dosage: DOSE UNKNOWN
     Route: 065
     Dates: start: 20210611
  10. SODIUM PICOSULFATE [Concomitant]
     Active Substance: SODIUM PICOSULFATE
     Dosage: DOSE UNKNOWN
     Route: 048
     Dates: start: 20210609
  11. AMITIZA [Concomitant]
     Active Substance: LUBIPROSTONE
     Dosage: DOSE UNKNOWN
     Route: 065
     Dates: start: 20210609
  12. SYMPROIC [Concomitant]
     Active Substance: NALDEMEDINE
     Dosage: DOSE UNKNOWN
     Route: 048
     Dates: start: 20210609

REACTIONS (6)
  - Death [Fatal]
  - Hypernatraemia [Recovering/Resolving]
  - Computed tomographic gastrography [Recovering/Resolving]
  - Dyspepsia [Unknown]
  - Blood potassium increased [Unknown]
  - Hypokalaemia [Recovering/Resolving]

NARRATIVE: CASE EVENT DATE: 20210610
